FAERS Safety Report 16641585 (Version 1)
Quarter: 2019Q3

REPORT INFORMATION
  Report Type: Spontaneous
  Country: US (occurrence: US)
  Receive Date: 20190729
  Receipt Date: 20190729
  Transmission Date: 20191004
  Serious: No
  Sender: FDA-Public Use
  Company Number: US-GLENMARK PHARMACEUTICALS-2019GMK039475

PATIENT

DRUGS (1)
  1. MUPIROCIN OINTMENT USP, 2% [Suspect]
     Active Substance: MUPIROCIN
     Indication: SKIN DISORDER
     Dosage: UNK, BID (TWICE A DAY)
     Route: 061
     Dates: start: 20190111

REACTIONS (9)
  - Skin exfoliation [Not Recovered/Not Resolved]
  - Skin erosion [Not Recovered/Not Resolved]
  - Skin fragility [Not Recovered/Not Resolved]
  - Hypersensitivity [Unknown]
  - Skin haemorrhage [Unknown]
  - Skin disorder [Not Recovered/Not Resolved]
  - Drug effective for unapproved indication [Unknown]
  - Dry skin [Not Recovered/Not Resolved]
  - Skin wrinkling [Not Recovered/Not Resolved]

NARRATIVE: CASE EVENT DATE: 2019
